FAERS Safety Report 4683228-5 (Version None)
Quarter: 2005Q2

REPORT INFORMATION
  Report Type: 
  Country: None (occurrence: None)
  Receive Date: 20050602
  Receipt Date: 20050128
  Transmission Date: 20051028
  Serious: No
  Sender: FDA-Public Use
  Company Number: USA050189431

PATIENT
  Age: 58 Year
  Sex: Male
  Weight: 77 kg

DRUGS (5)
  1. CYMBALTA [Suspect]
     Indication: DIABETIC NEUROPATHY
     Dosage: 30 MG AT BEDTIME
     Dates: start: 20050126
  2. TRAMADOL [Concomitant]
  3. LANTUS [Concomitant]
  4. MORPHINE SULFATE [Concomitant]
  5. COUMADIN [Concomitant]

REACTIONS (3)
  - BLOOD PRESSURE INCREASED [None]
  - DECREASED APPETITE [None]
  - NAUSEA [None]
